FAERS Safety Report 9711318 (Version 1)
Quarter: 2013Q4

REPORT INFORMATION
  Report Type: Spontaneous
  Country: US (occurrence: US)
  Receive Date: 20131126
  Receipt Date: 20131126
  Transmission Date: 20140711
  Serious: No
  Sender: FDA-Public Use
  Company Number: US-ROXANE LABORATORIES, INC.-2013-RO-01848RO

PATIENT
  Sex: 0

DRUGS (2)
  1. METHOTREXATE [Suspect]
     Indication: RHEUMATOID ARTHRITIS
     Dates: start: 201305
  2. CIMZIA [Concomitant]
     Indication: RHEUMATOID ARTHRITIS
     Dates: start: 201303

REACTIONS (3)
  - Pain [Unknown]
  - Arthralgia [Unknown]
  - Fatigue [Unknown]
